FAERS Safety Report 8454785-8 (Version None)
Quarter: 2012Q2

REPORT INFORMATION
  Report Type: 
  Country: None (occurrence: None)
  Receive Date: 20120621
  Receipt Date: 20120611
  Transmission Date: 20120825
  Serious: Yes (Hospitalization)
  Sender: FDA-Public Use
  Company Number: US-JNJFOC-20120212201

PATIENT
  Sex: Female
  Weight: 48.99 kg

DRUGS (15)
  1. PREDNISONE TAB [Suspect]
     Indication: PRODUCT USED FOR UNKNOWN INDICATION
     Route: 048
  2. CELEBREX [Concomitant]
     Route: 048
  3. ALPRAZOLAM [Concomitant]
     Route: 048
  4. SOMA [Concomitant]
     Route: 048
  5. NEURONTIN [Concomitant]
     Route: 048
  6. ELAVIL [Concomitant]
     Route: 048
  7. NORVASC [Concomitant]
     Indication: HYPERTENSION
     Route: 048
  8. REMICADE [Suspect]
     Indication: RHEUMATOID ARTHRITIS
     Dosage: ALSO REPORTED AS 0, 2, 6 WEEKS
     Route: 042
     Dates: start: 20111102
  9. REMICADE [Suspect]
     Route: 042
     Dates: start: 20120103, end: 20120103
  10. NORCO [Concomitant]
     Route: 048
  11. SYNTHROID [Concomitant]
     Indication: HYPOTHYROIDISM
     Route: 048
  12. PLAQUENIL [Concomitant]
     Route: 048
  13. REMICADE [Suspect]
     Route: 042
     Dates: start: 20111115
  14. DEXILANT [Concomitant]
     Route: 048
  15. TENORMIN [Concomitant]
     Route: 048

REACTIONS (7)
  - ACUTE RESPIRATORY FAILURE [None]
  - SEPSIS [None]
  - DIZZINESS [None]
  - INTERSTITIAL LUNG DISEASE [None]
  - SINUSITIS [None]
  - SHOCK [None]
  - IMMUNODEFICIENCY [None]
